FAERS Safety Report 5719354-9 (Version None)
Quarter: 2008Q2

REPORT INFORMATION
  Report Type: 
  Country: None (occurrence: None)
  Receive Date: 20080428
  Receipt Date: 20080417
  Transmission Date: 20081010
  Serious: Yes (Other)
  Sender: FDA-Public Use
  Company Number: CA-JNJFOC-20080405241

PATIENT
  Sex: Female

DRUGS (2)
  1. REMICADE [Suspect]
     Route: 042
  2. REMICADE [Suspect]
     Indication: DRUG USE FOR UNKNOWN INDICATION
     Route: 042

REACTIONS (6)
  - ADRENAL DISORDER [None]
  - CHOLELITHIASIS [None]
  - COLON CANCER [None]
  - DRUG INEFFECTIVE [None]
  - HEPATIC NEOPLASM MALIGNANT [None]
  - RENAL CYST [None]
